FAERS Safety Report 5066798-7 (Version None)
Quarter: 2006Q3

REPORT INFORMATION
  Report Type: 
  Country: None (occurrence: None)
  Receive Date: 20060726
  Receipt Date: 20060511
  Transmission Date: 20061208
  Serious: Yes (Life-Threatening)
  Sender: FDA-Public Use
  Company Number: 2006065550

PATIENT
  Age: 80 Year
  Sex: Male

DRUGS (9)
  1. IRINOTECAN HCL [Suspect]
     Indication: COLON CANCER
     Dosage: 150 MG/BODY (150 MG, 1 IN 2 WK), INTRAVENOUS
     Route: 042
     Dates: start: 20060105, end: 20060330
  2. FLUOROURACIL [Suspect]
     Indication: COLON CANCER
     Dosage: (2500 MG, IN 3 DAYS), INTRAVENOUS
     Route: 042
     Dates: start: 20060105, end: 20060107
  3. FLUOROURACIL [Suspect]
     Indication: COLON CANCER
     Dosage: (2500 MG, IN 3 DAYS), INTRAVENOUS
     Route: 042
     Dates: start: 20060119, end: 20060121
  4. FLUOROURACIL [Suspect]
     Indication: COLON CANCER
     Dosage: (2500 MG, IN 3 DAYS), INTRAVENOUS
     Route: 042
     Dates: start: 20060202, end: 20060204
  5. FLUOROURACIL [Suspect]
     Indication: COLON CANCER
     Dosage: (2500 MG, IN 3 DAYS), INTRAVENOUS
     Route: 042
     Dates: start: 20060216, end: 20060218
  6. FLUOROURACIL [Suspect]
     Indication: COLON CANCER
     Dosage: (2500 MG, IN 3 DAYS), INTRAVENOUS
     Route: 042
     Dates: start: 20060302, end: 20060304
  7. FLUOROURACIL [Suspect]
     Indication: COLON CANCER
     Dosage: (2500 MG, IN 3 DAYS), INTRAVENOUS
     Route: 042
     Dates: start: 20060316, end: 20060318
  8. FLUOROURACIL [Suspect]
     Indication: COLON CANCER
     Dosage: (2500 MG, IN 3 DAYS), INTRAVENOUS
     Route: 042
     Dates: start: 20060330, end: 20060401
  9. CALCIUM LEVOFOLINATE (CALCIUM LEVOFOLINATE) [Concomitant]

REACTIONS (6)
  - CANCER PAIN [None]
  - CONSTIPATION [None]
  - DIZZINESS [None]
  - INSOMNIA [None]
  - STATUS EPILEPTICUS [None]
  - VOMITING [None]
